FAERS Safety Report 5073883-2 (Version None)
Quarter: 2006Q3

REPORT INFORMATION
  Report Type: 
  Country: None (occurrence: None)
  Receive Date: 20060808
  Receipt Date: 20060421
  Transmission Date: 20061208
  Serious: No
  Sender: FDA-Public Use
  Company Number: US-AMGEN-KDL177494

PATIENT
  Age: 86 Year
  Sex: Male

DRUGS (7)
  1. PROCRIT [Suspect]
     Indication: ANAEMIA OF MALIGNANT DISEASE
     Route: 058
     Dates: start: 20060419
  2. ZOMETA [Concomitant]
  3. LUPRON [Concomitant]
  4. TOPRAL [Concomitant]
  5. CASODEX (ASTRA ZENECA) [Concomitant]
  6. NORVASC [Concomitant]
  7. LEVAQUIN [Concomitant]

REACTIONS (5)
  - ASTHENIA [None]
  - CHEST PAIN [None]
  - DYSPNOEA [None]
  - INSOMNIA [None]
  - POLLAKIURIA [None]
